FAERS Safety Report 6018313-9 (Version None)
Quarter: 2008Q4

REPORT INFORMATION
  Report Type: 
  Country: None (occurrence: None)
  Receive Date: 20081223
  Receipt Date: 20081211
  Transmission Date: 20090506
  Serious: Yes (Other)
  Sender: FDA-Public Use
  Company Number: JP-SANOFI-SYNTHELABO-A01200816240

PATIENT
  Age: 48 Year
  Sex: Female

DRUGS (4)
  1. UNSPECIFIED ANILINE-CONTAINING COMPOUND FOR COMMON COLD [Concomitant]
     Indication: UPPER RESPIRATORY TRACT INFECTION
     Dosage: UNK
     Route: 065
     Dates: start: 20080108
  2. RIBAVIRIN [Concomitant]
     Indication: HEPATITIS C
     Dosage: UNK
     Route: 065
     Dates: start: 20070701
  3. PEGINTERFERON ALFA-2A (GENETICAL RECOMBINATION) [Concomitant]
     Indication: HEPATITIS C
     Dosage: UNK
     Route: 065
     Dates: start: 20070701
  4. MYSLEE [Suspect]
     Indication: INSOMNIA
     Route: 065

REACTIONS (4)
  - DELIRIUM [None]
  - HYPERKINESIA [None]
  - LOGORRHOEA [None]
  - RESTLESSNESS [None]
